FAERS Safety Report 13950772 (Version 1)
Quarter: 2017Q3

REPORT INFORMATION
  Report Type: Spontaneous
  Country: US (occurrence: US)
  Receive Date: 20170908
  Receipt Date: 20170908
  Transmission Date: 20171128
  Serious: Yes (Other)
  Sender: FDA-Public Use
  Company Number: US-ROCHE-1131375

PATIENT
  Sex: Female

DRUGS (7)
  1. RITUXAN [Suspect]
     Active Substance: RITUXIMAB
     Indication: LYMPHOMA
     Route: 065
     Dates: start: 20000120
  2. RITUXAN [Suspect]
     Active Substance: RITUXIMAB
     Indication: OFF LABEL USE
  3. ATIVAN [Concomitant]
     Active Substance: LORAZEPAM
  4. VINCRISTINE [Concomitant]
     Active Substance: VINCRISTINE
  5. CYCLOPHOSPHAMIDE. [Concomitant]
     Active Substance: CYCLOPHOSPHAMIDE
  6. RITUXAN [Suspect]
     Active Substance: RITUXIMAB
     Indication: B-CELL LYMPHOMA
  7. HYDROXYDAUNORUBICIN [Concomitant]
     Active Substance: DOXORUBICIN

REACTIONS (5)
  - Lymphoma [Unknown]
  - Decreased appetite [Unknown]
  - Fatigue [Unknown]
  - Abdominal discomfort [Unknown]
  - Pain [Unknown]
